FAERS Safety Report 10788834 (Version 1)
Quarter: 2015Q1

REPORT INFORMATION
  Report Type: Report from Study
  Country: DE (occurrence: DE)
  Receive Date: 20150212
  Receipt Date: 20150212
  Transmission Date: 20150721
  Serious: Yes (Hospitalization, Disabling)
  Sender: FDA-Public Use
  Company Number: DE-ABBVIE-15K-062-1344252-00

PATIENT
  Sex: Female

DRUGS (1)
  1. HUMIRA [Suspect]
     Active Substance: ADALIMUMAB
     Indication: RHEUMATOID ARTHRITIS
     Route: 058
     Dates: start: 201004

REACTIONS (6)
  - Lumbar spinal stenosis [Recovered/Resolved]
  - Sciatica [Recovered/Resolved]
  - Spinal claudication [Recovered/Resolved]
  - Lumbar spinal stenosis [Not Recovered/Not Resolved]
  - Lumbar radiculopathy [Unknown]
  - Spinal cord injury lumbar [Unknown]

NARRATIVE: CASE EVENT DATE: 20120215
